FAERS Safety Report 13509123 (Version 2)
Quarter: 2017Q2

REPORT INFORMATION
  Report Type: Spontaneous
  Country: JP (occurrence: JP)
  Receive Date: 20170503
  Receipt Date: 20170527
  Transmission Date: 20170830
  Serious: Yes (Hospitalization)
  Sender: FDA-Public Use
  Company Number: JP-AMGEN-JPNSP2017066120

PATIENT
  Age: 78 Year
  Sex: Female
  Weight: 37 kg

DRUGS (5)
  1. ADETPHOS [Concomitant]
     Active Substance: ADENOSINE TRIPHOSPHATE
     Indication: EUSTACHIAN TUBE OBSTRUCTION
     Dosage: 300 MG, TID
     Route: 048
     Dates: end: 20170421
  2. METHYCOBAL [Concomitant]
     Active Substance: METHYLCOBALAMIN
     Indication: EUSTACHIAN TUBE OBSTRUCTION
     Dosage: 1500 MG, TID
     Route: 048
     Dates: end: 20170421
  3. PRALIA [Suspect]
     Active Substance: DENOSUMAB
     Indication: OSTEOPOROSIS
     Dosage: 60 MG, Q6MO
     Route: 058
     Dates: start: 20170329
  4. COCARL [Concomitant]
     Active Substance: ACETAMINOPHEN
     Indication: SPONDYLOLISTHESIS
     Dosage: 800 MG, BID
     Route: 048
     Dates: end: 20170421
  5. DENOTAS [Concomitant]
     Active Substance: CALCIUM CARBONATE\CHOLECALCIFEROL\MAGNESIUM CARBONATE
     Indication: OSTEOPOROSIS
     Dosage: 2 DF, BID
     Route: 048
     Dates: start: 20170329, end: 20170411

REACTIONS (1)
  - Liver disorder [Recovered/Resolved]

NARRATIVE: CASE EVENT DATE: 20170420
